FAERS Safety Report 14012190 (Version 9)
Quarter: 2018Q3

REPORT INFORMATION
  Report Type: Report from Study
  Country: KR (occurrence: KR)
  Receive Date: 20170926
  Receipt Date: 20180906
  Transmission Date: 20181010
  Serious: Yes (Death, Hospitalization)
  Sender: FDA-Public Use
  Company Number: KR-PFIZER INC-2017353640

PATIENT
  Age: 64 Year
  Sex: Female
  Weight: 59 kg

DRUGS (5)
  1. COZAAR [Concomitant]
     Active Substance: LOSARTAN POTASSIUM
     Dosage: 100 MG, UNK
     Dates: start: 20170629, end: 20170830
  2. SUNITINIB MALATE. [Suspect]
     Active Substance: SUNITINIB MALATE
     Indication: METASTATIC RENAL CELL CARCINOMA
     Dosage: 50 MG, 1X/DAY(FLUCTUATED DOSES)
     Route: 048
     Dates: start: 20170518, end: 20170614
  3. SUNITINIB MALATE. [Suspect]
     Active Substance: SUNITINIB MALATE
     Dosage: 37.5 MG, 1X/DAY(FLUCTUATED DOSES)
     Route: 048
     Dates: start: 20170713, end: 20170809
  4. SUNITINIB MALATE. [Suspect]
     Active Substance: SUNITINIB MALATE
     Dosage: 25 MG, 1X/DAY(FLUCTUATED DOSES)
     Route: 048
     Dates: start: 20170904, end: 20170914
  5. HARMONILAN [Concomitant]
     Dosage: 200 ML, UNK
     Route: 048
     Dates: start: 20170511, end: 20170811

REACTIONS (2)
  - Hyponatraemia [Recovered/Resolved]
  - Hypothyroidism [Not Recovered/Not Resolved]

NARRATIVE: CASE EVENT DATE: 20170810
